FAERS Safety Report 19607922 (Version 1)
Quarter: 2021Q3

REPORT INFORMATION
  Report Type: Spontaneous
  Country: US (occurrence: US)
  Receive Date: 20210726
  Receipt Date: 20210726
  Transmission Date: 20211014
  Serious: No
  Sender: FDA-Public Use
  Company Number: US-JNJFOC-20210738646

PATIENT
  Age: 45 Year
  Sex: Female
  Weight: 70.82 kg

DRUGS (10)
  1. LAMICTAL [Concomitant]
     Active Substance: LAMOTRIGINE
     Route: 065
  2. SERTRALINE [Concomitant]
     Active Substance: SERTRALINE HYDROCHLORIDE
     Route: 065
  3. SPRAVATO [Suspect]
     Active Substance: ESKETAMINE
     Indication: DEPRESSION
     Route: 045
     Dates: start: 20210714
  4. BUSPAR [Concomitant]
     Active Substance: BUSPIRONE HYDROCHLORIDE
     Route: 065
  5. MIRTAZAPINE. [Concomitant]
     Active Substance: MIRTAZAPINE
     Route: 065
  6. RELPAX [Concomitant]
     Active Substance: ELETRIPTAN HYDROBROMIDE
     Route: 065
  7. UBRELVY [Concomitant]
     Active Substance: UBROGEPANT
     Route: 065
  8. CLONAZEPAM. [Concomitant]
     Active Substance: CLONAZEPAM
     Route: 065
  9. LINZESS [Concomitant]
     Active Substance: LINACLOTIDE
     Route: 065
  10. GABAPENTIN. [Concomitant]
     Active Substance: GABAPENTIN
     Route: 065

REACTIONS (2)
  - Disorientation [Recovered/Resolved]
  - Sedation complication [Recovered/Resolved]

NARRATIVE: CASE EVENT DATE: 20210714
